FAERS Safety Report 23735685 (Version 1)
Quarter: 2024Q2

REPORT INFORMATION
  Report Type: Spontaneous
  Country: US (occurrence: US)
  Receive Date: 20240412
  Receipt Date: 20240412
  Transmission Date: 20240715
  Serious: No
  Sender: FDA-Public Use
  Company Number: US-TEVA-VS-3176003

PATIENT
  Age: 70 Year
  Sex: Female

DRUGS (1)
  1. ALBUTEROL SULFATE [Suspect]
     Active Substance: ALBUTEROL SULFATE
     Indication: Bronchiectasis
     Dosage: DOSE: 90 MCG/DOSE, ALBUTEROL SULFATE HFA TAKE 2 PUFFS EVERY 4-6 HOURS AS NEEDED FOR BRONCHIECTASIS.
     Route: 055

REACTIONS (1)
  - Product use in unapproved indication [Unknown]
